FAERS Safety Report 7875196-X (Version None)
Quarter: 2011Q4

REPORT INFORMATION
  Report Type: 
  Country: None (occurrence: None)
  Receive Date: 20111031
  Receipt Date: 20111021
  Transmission Date: 20120403
  Serious: Yes (Hospitalization)
  Sender: FDA-Public Use
  Company Number: US-ASTELLAS-2011US006952

PATIENT
  Sex: Male
  Weight: 126 kg

DRUGS (3)
  1. ZETIA [Concomitant]
     Indication: BLOOD CHOLESTEROL
     Dosage: 10 DF, UID/QD
     Route: 048
  2. AMEVIVE [Suspect]
     Indication: PSORIASIS
     Dosage: 15 MG, WEEKLY
     Route: 030
     Dates: start: 20081118, end: 20090727
  3. IMDUR [Concomitant]
     Indication: CARDIAC DISORDER
     Dosage: 120 DF, BID
     Route: 048

REACTIONS (1)
  - CARDIAC FAILURE CONGESTIVE [None]
